FAERS Safety Report 6122467-3 (Version None)
Quarter: 2009Q1

REPORT INFORMATION
  Report Type: 
  Country: None (occurrence: None)
  Receive Date: 20090318
  Receipt Date: 20081202
  Transmission Date: 20090719
  Serious: No
  Sender: FDA-Public Use
  Company Number: US-ASTRAZENECA-2008UW26888

PATIENT
  Age: 6 Year
  Sex: Male

DRUGS (2)
  1. SYMBICORT [Suspect]
     Indication: ASTHMA
     Dosage: 80/4.5 MCG 120 INHALATIONS TWO TIMES A DAY
     Route: 055
  2. ALBUTEROL [Concomitant]

REACTIONS (1)
  - DYSPNOEA [None]
